FAERS Safety Report 4809133-9 (Version None)
Quarter: 2005Q4

REPORT INFORMATION
  Report Type: 
  Country: None (occurrence: None)
  Receive Date: 20051021
  Receipt Date: 20030218
  Transmission Date: 20060501
  Serious: No
  Sender: FDA-Public Use
  Company Number: EWC030234002

PATIENT
  Age: 39 Year
  Sex: Female

DRUGS (3)
  1. ZYPREXA [Suspect]
     Indication: ABNORMAL BEHAVIOUR
     Dosage: 20 MG/DAY
     Dates: start: 20000101
  2. LORAZEPAM [Concomitant]
  3. CHLORPROMAZINE HCL [Concomitant]

REACTIONS (2)
  - MENSTRUATION IRREGULAR [None]
  - WEIGHT INCREASED [None]
